FAERS Safety Report 17978431 (Version 1)
Quarter: 2020Q3

REPORT INFORMATION
  Report Type: Spontaneous
  Country: US (occurrence: US)
  Receive Date: 20200703
  Receipt Date: 20200703
  Transmission Date: 20201103
  Serious: No
  Sender: FDA-Public Use
  Company Number: US-009507513-2007USA000591

PATIENT
  Age: 73 Year
  Sex: Female

DRUGS (2)
  1. CUBICIN [Suspect]
     Active Substance: DAPTOMYCIN
     Indication: INFECTION
     Dosage: 500 MILLIGRAM, UNK
     Route: 042
     Dates: start: 20200630
  2. VANCOMYCIN [Concomitant]
     Active Substance: VANCOMYCIN
     Dosage: UNK

REACTIONS (1)
  - Chills [Recovering/Resolving]

NARRATIVE: CASE EVENT DATE: 20200630
